FAERS Safety Report 4826772-X (Version None)
Quarter: 2005Q4

REPORT INFORMATION
  Report Type: 
  Country: None (occurrence: None)
  Receive Date: 20051111
  Receipt Date: 20051111
  Transmission Date: 20060501
  Serious: Yes (Hospitalization, Other)
  Sender: FDA-Public Use
  Company Number: None

PATIENT
  Sex: Female
  Weight: 58.5 kg

DRUGS (2)
  1. TAXOL [Suspect]
     Indication: NON-SMALL CELL LUNG CANCER
     Dosage: SEE IMAGE
     Dates: start: 20051005
  2. CARBOPLATIN [Suspect]
     Dosage: SEE IMAGE

REACTIONS (5)
  - DYSPHAGIA [None]
  - GASTRITIS [None]
  - METASTASIS [None]
  - NAUSEA [None]
  - OESOPHAGEAL STENOSIS [None]
